FAERS Safety Report 7626855-5 (Version None)
Quarter: 2011Q3

REPORT INFORMATION
  Report Type: 
  Country: None (occurrence: None)
  Receive Date: 20110721
  Receipt Date: 20110714
  Transmission Date: 20111222
  Serious: Yes (Hospitalization)
  Sender: FDA-Public Use
  Company Number: DE-TEVA-290519GER

PATIENT
  Age: 44 Year
  Sex: Male

DRUGS (3)
  1. CORTISONE ACETATE [Concomitant]
  2. PAMIDRONAT [Suspect]
     Indication: MULTIPLE MYELOMA
     Dosage: MONATLICH
     Route: 042
     Dates: start: 20020701, end: 20090901
  3. ZOLEDRONIC ACID [Suspect]
     Indication: MULTIPLE MYELOMA
     Dosage: MONTHLY
     Route: 042
     Dates: start: 20030901, end: 20040901

REACTIONS (2)
  - ORAL DYSAESTHESIA [None]
  - OSTEOMYELITIS [None]
